FAERS Safety Report 4580436-9 (Version None)
Quarter: 2005Q1

REPORT INFORMATION
  Report Type: 
  Country: None (occurrence: None)
  Receive Date: 20050214
  Receipt Date: 20040123
  Transmission Date: 20050727
  Serious: No
  Sender: FDA-Public Use
  Company Number: US-GLAXOSMITHKLINE-A0495027A

PATIENT
  Age: 84 Year
  Sex: Female

DRUGS (6)
  1. LAMICTAL [Suspect]
     Indication: BIPOLAR DISORDER
     Dosage: 50MG PER DAY
     Route: 048
     Dates: start: 20040102
  2. ZYPREXA [Concomitant]
  3. LITHIUM [Concomitant]
  4. MACRODANTIN [Concomitant]
  5. PROZAC [Concomitant]
  6. FELODIPINE [Concomitant]

REACTIONS (1)
  - ALOPECIA [None]
